FAERS Safety Report 7204056-2 (Version None)
Quarter: 2010Q4

REPORT INFORMATION
  Report Type: 
  Country: None (occurrence: None)
  Receive Date: 20101230
  Receipt Date: 20101217
  Transmission Date: 20110411
  Serious: Yes (Other)
  Sender: FDA-Public Use
  Company Number: JP-JNJCH-2010029585

PATIENT
  Age: 78 Year

DRUGS (1)
  1. ZYRTEC [Suspect]
     Indication: PRODUCT USED FOR UNKNOWN INDICATION
     Dosage: TEXT:10 MG QD
     Route: 048

REACTIONS (2)
  - CONVULSION [None]
  - POLLAKIURIA [None]
